FAERS Safety Report 20396947 (Version 2)
Quarter: 2022Q1

REPORT INFORMATION
  Report Type: Spontaneous
  Country: US (occurrence: US)
  Receive Date: 20220131
  Receipt Date: 20220201
  Transmission Date: 20220423
  Serious: Yes (Hospitalization)
  Sender: FDA-Public Use
  Company Number: US-ABBVIE-21K-163-3843467-00

PATIENT
  Age: 68 Year
  Sex: Female
  Weight: 80.812 kg

DRUGS (2)
  1. HUMIRA [Suspect]
     Active Substance: ADALIMUMAB
     Indication: Rheumatoid arthritis
     Route: 058
     Dates: start: 20210317
  2. COVID-19 VACCINE NOS [Suspect]
     Active Substance: COVID-19 VACCINE NOS
     Indication: COVID-19 immunisation
     Dosage: MODERNA
     Route: 030

REACTIONS (7)
  - Palpitations [Unknown]
  - Pyrexia [Unknown]
  - Cardiac disorder [Unknown]
  - Hypersensitivity [Unknown]
  - Asthma [Unknown]
  - Wrong technique in product usage process [Recovered/Resolved]
  - Dizziness [Unknown]

NARRATIVE: CASE EVENT DATE: 20210317
